FAERS Safety Report 19900733 (Version 1)
Quarter: 2021Q3

REPORT INFORMATION
  Report Type: Spontaneous
  Country: US (occurrence: US)
  Receive Date: 20210929
  Receipt Date: 20210929
  Transmission Date: 20211014
  Serious: Yes (Other)
  Sender: FDA-Public Use
  Company Number: US-ASTRAZENECA-2021A748220

PATIENT
  Age: 85 Year
  Sex: Female

DRUGS (21)
  1. ACETAMINOPHEN?CODEINE [Concomitant]
     Active Substance: ACETAMINOPHEN\CODEINE PHOSPHATE
     Dosage: 300 TO 30 MG TAKE 1 TABLET BY MOUTH EVERY 12 HOURS AS NEEDED
  2. AMLODIPINE [Concomitant]
     Active Substance: AMLODIPINE BESYLATE
     Dosage: TAKEN 1 TABLET BY MOTH DAILY
  3. METOPROLOL TARTRATE. [Suspect]
     Active Substance: METOPROLOL TARTRATE
     Route: 048
  4. NARCAN [Concomitant]
     Active Substance: NALOXONE HYDROCHLORIDE
     Dosage: 1 SPRAY IN 1 NOSTRIL
  5. CEFTRIAXONE. [Concomitant]
     Active Substance: CEFTRIAXONE
  6. LEVOTHYROXIN [Concomitant]
     Active Substance: LEVOTHYROXINE
     Dosage: LAST TIME WAS TAKEN 05?FEB?2021, 1 TABLET BY MOUTH DAILY
  7. NYSTOP [Concomitant]
     Active Substance: NYSTATIN
     Dosage: 10,000 UNITS/GRAM POWDER. APPLY TO AFFECTED AREA THREE TIME A DAY AS DIRECTED.
  8. ACETAMINOPHEN. [Concomitant]
     Active Substance: ACETAMINOPHEN
  9. ASPIRIN. [Concomitant]
     Active Substance: ASPIRIN
     Dosage: TAKE 1 TABLET BY MOUTH DAILY
  10. LANTUS [Concomitant]
     Active Substance: INSULIN GLARGINE
     Dosage: 100 UNITS/ML SOLUTION, LAST TIME THIS WAS GIVEN 04?FEB?2021, INJECT 20 UNITS SUBCUTANEOUS DURING ...
  11. ONDANSETRON [Concomitant]
     Active Substance: ONDANSETRON
     Indication: VOMITING
     Dosage: TAKE ONE TABLET BY MOUTH EVERY 4 TO 6 HOURS AS NEEDED
  12. SODIUM CHLORIDE. [Concomitant]
     Active Substance: SODIUM CHLORIDE
     Dosage: LAST TIME TAKEN 05?FEB?2021
  13. PRILOSEC [Suspect]
     Active Substance: OMEPRAZOLE MAGNESIUM
     Route: 048
     Dates: start: 20210430
  14. CRESTOR [Suspect]
     Active Substance: ROSUVASTATIN CALCIUM
     Route: 048
  15. TOZINAMERAN. [Suspect]
     Active Substance: TOZINAMERAN
     Route: 065
  16. ASPERCREME NOS [Concomitant]
     Active Substance: MENTHOL\TROLAMINE SALICYLATE
     Dosage: 4 PERCENTAGE PTMD PATCH
  17. ONDANSETRON [Concomitant]
     Active Substance: ONDANSETRON
     Indication: NAUSEA
     Dosage: TAKE ONE TABLET BY MOUTH EVERY 4 TO 6 HOURS AS NEEDED
  18. PFIZER?BIONTECH COVID?19 VACCINE [Concomitant]
     Active Substance: TOZINAMERAN
     Route: 030
     Dates: start: 20210220
  19. CHOLECALCIFEROL [Concomitant]
     Active Substance: CHOLECALCIFEROL
     Dosage: 50 MCG, TAKE 2 DAILY ASK TO NURSE OR DOCTOR
  20. LOSARTAN. [Concomitant]
     Active Substance: LOSARTAN
     Dosage: 1 TABLET BY MOUTH DAILY
  21. PFIZER?BIONTECH COVID?19 VACCINE [Concomitant]
     Active Substance: TOZINAMERAN
     Route: 030
     Dates: start: 20210401

REACTIONS (15)
  - Mental disorder [Unknown]
  - Confusional state [Unknown]
  - Drug hypersensitivity [Unknown]
  - Dyspnoea [Unknown]
  - Rash [Unknown]
  - Headache [Unknown]
  - Urosepsis [Unknown]
  - Nausea [Unknown]
  - Vomiting [Unknown]
  - Tachycardia [Unknown]
  - Muscle spasms [Unknown]
  - Escherichia bacteraemia [Unknown]
  - Tachypnoea [Unknown]
  - Asthenia [Unknown]
  - Pain [Unknown]
